FAERS Safety Report 8632565 (Version 2)
Quarter: 2012Q4

REPORT INFORMATION
  Report Type: 
  Country: US (occurrence: US)
  Receive Date: 20120625
  Receipt Date: 20121219
  Transmission Date: 20130627
  Serious: Yes (Hospitalization)
  Sender: FDA-Public Use
  Company Number: US-BAYER-2012-061828

PATIENT
  Age: 42 Year
  Sex: Female
  Weight: 54.88 kg

DRUGS (8)
  1. YAZ [Suspect]
     Indication: BIRTH CONTROL
  2. YAZ [Suspect]
     Indication: ACNE
  3. YASMIN [Suspect]
     Indication: ACNE
  4. OCELLA [Suspect]
     Indication: ACNE
  5. NITROFURANT MACRO [Concomitant]
     Dosage: 100 mg, UNK
  6. PHENAZOPYRIDINE HYDROCHLORIDE [Concomitant]
     Dosage: 200 mg, UNK
  7. KETOROLAC TROMETHAMINE [Concomitant]
     Dosage: 10 mg, UNK
  8. METHYLPREDNISOLONE [Concomitant]
     Dosage: 4 mg, UNK

REACTIONS (4)
  - Pulmonary embolism [None]
  - Injury [None]
  - Pain [None]
  - Pain [None]
